FAERS Safety Report 10763062 (Version 2)
Quarter: 2015Q1

REPORT INFORMATION
  Report Type: Report from Study
  Country: BR (occurrence: BR)
  Receive Date: 20150204
  Receipt Date: 20150209
  Transmission Date: 20150721
  Serious: Yes (Hospitalization)
  Sender: FDA-Public Use
  Company Number: BR-ABBVIE-15K-020-1339901-00

PATIENT
  Age: 43 Year
  Sex: Female
  Weight: 68 kg

DRUGS (4)
  1. PREDSIM [Concomitant]
     Active Substance: PREDNISOLONE
     Indication: ARTHRITIS
     Route: 048
  2. CAPTOPRIL. [Concomitant]
     Active Substance: CAPTOPRIL
     Indication: HYPERTENSION
     Route: 048
     Dates: start: 201411
  3. ARAVA [Concomitant]
     Active Substance: LEFLUNOMIDE
     Indication: ARTHRITIS
     Route: 048
  4. HUMIRA [Suspect]
     Active Substance: ADALIMUMAB
     Indication: RHEUMATOID ARTHRITIS
     Route: 058
     Dates: start: 2013

REACTIONS (5)
  - Injection site mass [Not Recovered/Not Resolved]
  - Stress [Unknown]
  - Blood creatine phosphokinase MB abnormal [Unknown]
  - Hypertensive crisis [Recovering/Resolving]
  - Hyperhidrosis [Recovering/Resolving]

NARRATIVE: CASE EVENT DATE: 201412
